FAERS Safety Report 24825037 (Version 1)
Quarter: 2025Q1

REPORT INFORMATION
  Report Type: Report from Study
  Country: US (occurrence: US)
  Receive Date: 20250109
  Receipt Date: 20250109
  Transmission Date: 20250408
  Serious: No
  Sender: SUNOVION
  Company Number: US-SMPA-2024SPA006730AA

PATIENT

DRUGS (8)
  1. ORGOVYX [Suspect]
     Active Substance: RELUGOLIX
     Indication: Prostate cancer
     Dosage: 360 MG, SINGLE
     Route: 048
  2. ORGOVYX [Suspect]
     Active Substance: RELUGOLIX
     Dosage: 120 MG, QD
     Route: 048
  3. ABIRATERONE [Suspect]
     Active Substance: ABIRATERONE
     Dosage: 1000 MG, QD (4 TABLETS (1000 MG) ONCE A DAY)
     Route: 048
  4. ABIRATERONE [Suspect]
     Active Substance: ABIRATERONE
     Dosage: 500 MG, QD (2 TABLETS (500 MG) ONCE A DAY)
     Route: 048
  5. PREDNISONE [Concomitant]
     Active Substance: PREDNISONE
     Route: 065
  6. ATORVASTATIN [Concomitant]
     Active Substance: ATORVASTATIN
     Route: 065
  7. METFORMIN [Concomitant]
     Active Substance: METFORMIN HYDROCHLORIDE
     Route: 065
  8. ASPIRIN [Concomitant]
     Active Substance: ASPIRIN
     Route: 065

REACTIONS (1)
  - Hepatic enzyme increased [Unknown]
